FAERS Safety Report 9349858 (Version 1)
Quarter: 2013Q2

REPORT INFORMATION
  Report Type: Spontaneous
  Country: US (occurrence: None)
  Receive Date: 20130611
  Receipt Date: 20130611
  Transmission Date: 20140414
  Serious: Yes (Hospitalization)
  Sender: FDA-Public Use
  Company Number: SYM-2013-04680

PATIENT
  Age: 61 Year
  Sex: Male

DRUGS (1)
  1. XENAZINE (TETRABENAZINE) (25 MILLIGRAM, TABLETS) (TETRABENAZINE) [Suspect]
     Indication: DYSKINESIA
     Dosage: 100 MG, DIVIDED DOSE DAILY, ORAL
     Route: 048
     Dates: start: 20100507

REACTIONS (1)
  - Investigation [None]
